FAERS Safety Report 25953531 (Version 1)
Quarter: 2025Q4

REPORT INFORMATION
  Report Type: Report from Study
  Country: BR (occurrence: BR)
  Receive Date: 20251023
  Receipt Date: 20251023
  Transmission Date: 20260118
  Serious: Yes (Hospitalization, Disabling, Other)
  Sender: NOVARTIS
  Company Number: BR-002147023-NVSC2023BR086699

PATIENT
  Age: 25 Year
  Sex: Female

DRUGS (3)
  1. KYMRIAH [Suspect]
     Active Substance: TISAGENLECLEUCEL
     Indication: Diffuse large B-cell lymphoma
     Dosage: UNK, ONCE/SINGLE, CELL DOSE 3
     Route: 042
     Dates: start: 20230406, end: 20230406
  2. DEXAMETHASONE [Concomitant]
     Active Substance: DEXAMETHASONE
     Indication: Product used for unknown indication
     Dosage: 10 MG
     Route: 042
     Dates: start: 20230411
  3. Immunoglobulin [Concomitant]
     Indication: Product used for unknown indication
     Dosage: 23.92 MG
     Route: 065
     Dates: start: 20240530

REACTIONS (26)
  - Diarrhoea [Recovered/Resolved]
  - Rhinorrhoea [Unknown]
  - Viral diarrhoea [Recovered/Resolved]
  - Productive cough [Unknown]
  - Pain [Unknown]
  - Cytokine release syndrome [Recovered/Resolved]
  - Hypotension [Unknown]
  - Sinus disorder [Recovered/Resolved]
  - Headache [Unknown]
  - Pyrexia [Recovered/Resolved]
  - Febrile neutropenia [Recovered/Resolved]
  - Cytokine release syndrome [Recovered/Resolved]
  - Diffuse large B-cell lymphoma [Recovered/Resolved]
  - Malignant neoplasm progression [Recovered/Resolved]
  - Coeliac disease [Not Recovered/Not Resolved]
  - Hypotension [Recovered/Resolved]
  - Pyrexia [Recovered/Resolved]
  - Body temperature increased [Unknown]
  - Tachycardia [Unknown]
  - Asthenia [Unknown]
  - Dry skin [Unknown]
  - Pyrexia [Unknown]
  - Hypotension [Unknown]
  - Back pain [Recovered/Resolved]
  - Urinary tract infection [Recovered/Resolved]
  - Adverse drug reaction [Recovered/Resolved]

NARRATIVE: CASE EVENT DATE: 20230409
